FAERS Safety Report 22643050 (Version 1)
Quarter: 2023Q2

REPORT INFORMATION
  Report Type: Spontaneous
  Country: US (occurrence: US)
  Receive Date: 20230627
  Receipt Date: 20230627
  Transmission Date: 20230722
  Serious: No
  Sender: FDA-Public Use
  Company Number: US-ALCON LABORATORIES-ALC2022US003553

PATIENT
  Age: 71 Year
  Sex: Male

DRUGS (1)
  1. PATADAY ONCE DAILY RELIEF [Interacting]
     Active Substance: OLOPATADINE HYDROCHLORIDE
     Indication: Product used for unknown indication
     Dosage: 1 DRP, QD
     Route: 047

REACTIONS (1)
  - Dizziness [Recovered/Resolved]
